FAERS Safety Report 7125768-5 (Version None)
Quarter: 2010Q4

REPORT INFORMATION
  Report Type: 
  Country: None (occurrence: None)
  Receive Date: 20101129
  Receipt Date: 20101118
  Transmission Date: 20110411
  Serious: Yes (Other)
  Sender: FDA-Public Use
  Company Number: B0685353A

PATIENT
  Sex: Female

DRUGS (2)
  1. FLUTIDE DISKUS [Suspect]
     Indication: ASTHMA
     Dosage: 200MCG PER DAY
     Route: 055
  2. FLUTIDE DISKUS [Suspect]
     Dosage: 400MCG PER DAY
     Route: 055

REACTIONS (2)
  - ASTHMA [None]
  - DRUG EXPOSURE DURING PREGNANCY [None]
